APPROVED DRUG PRODUCT: LACOSAMIDE
Active Ingredient: LACOSAMIDE
Strength: 50MG
Dosage Form/Route: TABLET;ORAL
Application: A208308 | Product #001 | TE Code: AB
Applicant: REGCON HOLDINGS LLC
Approved: Mar 17, 2022 | RLD: No | RS: No | Type: RX